FAERS Safety Report 4736161-4 (Version None)
Quarter: 2005Q3

REPORT INFORMATION
  Report Type: 
  Country: None (occurrence: None)
  Receive Date: 20050728
  Receipt Date: 20050420
  Transmission Date: 20060218
  Serious: No
  Sender: FDA-Public Use
  Company Number: 200512140US

PATIENT
  Age: 47 Year
  Sex: Female
  Weight: 60.9 kg

DRUGS (4)
  1. KETEK [Suspect]
     Indication: SINUSITIS
     Dosage: 500 MG BID PO
     Route: 048
     Dates: start: 20050120, end: 20050207
  2. PREDNISONE [Concomitant]
  3. MOMETASONE FUROATE (NASONEX) [Concomitant]
  4. FLUTICASONE PROPIONATE, SALMETEROL XINAFOATE (ADVAIR DISKUS) [Concomitant]

REACTIONS (1)
  - TINNITUS [None]
